FAERS Safety Report 5266726-5 (Version None)
Quarter: 2007Q1

REPORT INFORMATION
  Report Type: 
  Country: None (occurrence: None)
  Receive Date: 20070312
  Receipt Date: 20070222
  Transmission Date: 20070707
  Serious: Yes (Other)
  Sender: FDA-Public Use
  Company Number: 2006BL004933

PATIENT
  Age: 33 Year
  Sex: Female

DRUGS (4)
  1. PREDNISOLONE SODIUM PHOSPHATE [Suspect]
     Indication: UVEITIS
     Dosage: UNKNOWN; DAILY; UNKNOWN
  2. ACTOS [Suspect]
     Indication: DIABETES MELLITUS
     Dosage: 45 MILLIGRAMS; DAILY; UNKNOWN
  3. METFORMIN HCL [Suspect]
     Indication: DIABETES MELLITUS
     Dosage: 1 GRAMS; TWICE A DAY; ORAL
     Route: 048
  4. INSULIN [Concomitant]

REACTIONS (4)
  - DIABETES MELLITUS INADEQUATE CONTROL [None]
  - MACULAR OEDEMA [None]
  - RETINAL ANEURYSM [None]
  - UVEITIS [None]
